FAERS Safety Report 4721444-4 (Version None)
Quarter: 2005Q3

REPORT INFORMATION
  Report Type: 
  Country: None (occurrence: None)
  Receive Date: 20050721
  Receipt Date: 20040909
  Transmission Date: 20060218
  Serious: Yes (Other)
  Sender: FDA-Public Use
  Company Number: US-BRISTOL-MYERS SQUIBB COMPANY-12697694

PATIENT
  Sex: Male

DRUGS (1)
  1. COUMADIN [Suspect]
     Indication: QUADRUPLE VESSEL BYPASS GRAFT
     Route: 048
     Dates: end: 20040101

REACTIONS (1)
  - INTERNATIONAL NORMALISED RATIO INCREASED [None]
